FAERS Safety Report 16859998 (Version 1)
Quarter: 2019Q3

REPORT INFORMATION
  Report Type: Spontaneous
  Country: GB (occurrence: GB)
  Receive Date: 20190927
  Receipt Date: 20190927
  Transmission Date: 20191005
  Serious: Yes (Other)
  Sender: FDA-Public Use
  Company Number: GB-SUN PHARMACEUTICAL INDUSTRIES LTD-2019RR-222104

PATIENT
  Age: 23 Year
  Sex: Male
  Weight: 68 kg

DRUGS (2)
  1. ISOTRETINOIN. [Suspect]
     Active Substance: ISOTRETINOIN
     Indication: ACNE
     Dosage: 30 MILLIGRAM, UNK
     Route: 048
     Dates: start: 20190116, end: 20190123
  2. ISOTRETINOIN. [Suspect]
     Active Substance: ISOTRETINOIN
     Indication: ACNE
     Dosage: 30 MILLIGRAM, UNK
     Route: 048
     Dates: start: 20190116, end: 20190123

REACTIONS (6)
  - Ejaculation disorder [Recovered/Resolved]
  - Withdrawal syndrome [Unknown]
  - Loss of libido [Recovered/Resolved]
  - Erectile dysfunction [Recovered/Resolved]
  - Palpitations [Not Recovered/Not Resolved]
  - Cardiac flutter [Unknown]

NARRATIVE: CASE EVENT DATE: 20190122
